FAERS Safety Report 24411851 (Version 1)
Quarter: 2024Q4

REPORT INFORMATION
  Report Type: Spontaneous
  Country: IT (occurrence: IT)
  Receive Date: 20241008
  Receipt Date: 20241008
  Transmission Date: 20250115
  Serious: Yes (Life-Threatening)
  Sender: TEVA
  Company Number: None

PATIENT
  Age: 81 Year
  Sex: Male
  Weight: 60 kg

DRUGS (1)
  1. VENLAFAXINE [Suspect]
     Active Substance: VENLAFAXINE HYDROCHLORIDE
     Indication: Product used for unknown indication
     Dosage: 1 CP PER DAY, BATCH NOT AVAILABLE BECAUSE TAKEN AT HOME
     Route: 065
     Dates: start: 20240814, end: 20240902

REACTIONS (1)
  - Hyponatraemia [Recovered/Resolved]

NARRATIVE: CASE EVENT DATE: 20240902
